FAERS Safety Report 9355050 (Version 2)
Quarter: 2013Q2

REPORT INFORMATION
  Report Type: Spontaneous
  Country: US (occurrence: US)
  Receive Date: 20130619
  Receipt Date: 20130624
  Transmission Date: 20140414
  Serious: Yes (Other)
  Sender: FDA-Public Use
  Company Number: US-ROCHE-1238626

PATIENT
  Age: 32 Year
  Sex: Male
  Weight: 85.81 kg

DRUGS (7)
  1. XOLAIR [Suspect]
     Indication: PRODUCT USED FOR UNKNOWN INDICATION
     Route: 058
     Dates: start: 20130416
  2. SPIRIVA [Concomitant]
     Dosage: INHALATION
     Route: 048
  3. SYMBICORT [Concomitant]
     Dosage: 2 PUFFS 160/4.5
     Route: 048
  4. PROVENTIL [Concomitant]
     Dosage: 2 PUFF EVERY 4-6 HOURS
     Route: 048
  5. XOPENEX [Concomitant]
     Dosage: 0.63 MG/3ML, 1 AMP EVERY 4-6 HOURS
     Route: 048
  6. ZYRTEC [Concomitant]
     Route: 048
  7. MONTELUKAST [Concomitant]
     Route: 048

REACTIONS (1)
  - Pulmonary embolism [Recovering/Resolving]
